FAERS Safety Report 9205757 (Version 2)
Quarter: 2013Q2

REPORT INFORMATION
  Report Type: Spontaneous
  Country: US (occurrence: None)
  Receive Date: 20130401
  Receipt Date: 20130401
  Transmission Date: 20140414
  Serious: Yes (Hospitalization, Other)
  Sender: FDA-Public Use
  Company Number: ADR-2013-00533

PATIENT
  Age: 22 Year
  Sex: Male

DRUGS (2)
  1. LIORESAL [Suspect]
     Dosage: 106.3 MCG/DAY
  2. GABLOFEN INTRATHECAL [Concomitant]

REACTIONS (5)
  - Psychotic disorder [None]
  - Delusion [None]
  - Hallucination [None]
  - Paranoia [None]
  - Aggression [None]
